FAERS Safety Report 4712834-4 (Version None)
Quarter: 2005Q3

REPORT INFORMATION
  Report Type: 
  Country: None (occurrence: None)
  Receive Date: 20050713
  Receipt Date: 20050705
  Transmission Date: 20060218
  Serious: Yes (Life-Threatening, Hospitalization)
  Sender: FDA-Public Use
  Company Number: GB-BOEHRINGER INGELHEIM PHARMACEUTICALS, INC.-2005-UK-01215UK

PATIENT
  Age: 78 Year
  Sex: Female

DRUGS (6)
  1. MOBIC [Suspect]
     Indication: OSTEOARTHRITIS
     Dosage: 7.5 MG TWICE DAILY
     Route: 048
     Dates: start: 20050405, end: 20050607
  2. PERINDOPRIL [Concomitant]
     Indication: BLOOD PRESSURE INCREASED
     Dosage: 4 MG ONCE DAILY
     Route: 048
  3. BENDROFLUMETHIAZIDE [Concomitant]
     Indication: BLOOD PRESSURE INCREASED
     Dosage: 2.5 MG ONCE DAILY
     Route: 048
  4. AMOXICILLIN [Concomitant]
     Route: 048
  5. SALBUTAMOL [Concomitant]
     Indication: ASTHMA
     Dosage: AS REQUIRED
     Route: 055
  6. BECLOMETHASONE DIPROPIONATE [Concomitant]
     Indication: ASTHMA
     Dosage: 500 MCG TWICE DAILY
     Route: 055

REACTIONS (4)
  - ABDOMINAL PAIN [None]
  - DUODENAL ULCER HAEMORRHAGE [None]
  - HELICOBACTER PYLORI IDENTIFICATION TEST POSITIVE [None]
  - PERITONITIS [None]
